FAERS Safety Report 6591241-6 (Version None)
Quarter: 2010Q1

REPORT INFORMATION
  Report Type: 
  Country: None (occurrence: None)
  Receive Date: 20100219
  Receipt Date: 20100209
  Transmission Date: 20100710
  Serious: Yes (Other)
  Sender: FDA-Public Use
  Company Number: PHEH2010US01083

PATIENT
  Sex: Male

DRUGS (15)
  1. EXJADE [Suspect]
     Indication: IRON OVERLOAD
     Dosage: 1500 MG DAILY
     Route: 048
     Dates: start: 20090101, end: 20090427
  2. DIAMOX SRC [Concomitant]
     Dosage: 500 MG, BID
     Route: 048
  3. COLCHICINE W/PROBENECID [Concomitant]
     Dosage: 0.5/500 MG DAILY
     Route: 048
  4. FOLIC ACID [Concomitant]
     Dosage: 1 MG DAILY
     Route: 048
  5. K-DUR [Concomitant]
     Dosage: 20 MEQ, BID
     Route: 048
  6. LORATADINE [Concomitant]
     Dosage: 10 MG DAILY
     Route: 048
  7. MAGNESIUM OXIDE [Concomitant]
     Dosage: 800 MG, Q12H
     Route: 048
  8. METOPROLOL TARTRATE [Concomitant]
     Dosage: 50 MG, BID
     Route: 048
  9. NEXIUM [Concomitant]
     Dosage: 40 MG DAILY
     Route: 048
  10. OXYCODONE [Concomitant]
     Indication: PAIN
     Dosage: 10 MG EVERY 6 HOURS PRN
     Route: 048
  11. ACYCLOVIR SODIUM [Concomitant]
     Dosage: 40 MG, BID
  12. BOOST [Concomitant]
     Dosage: 8 OUNCES TID
  13. LEVAQUIN [Concomitant]
     Dosage: 500 MG DAILY
  14. POSACONAZOLE [Concomitant]
     Dosage: 200 MG, TID
  15. VITAMIN B1 TAB [Concomitant]

REACTIONS (19)
  - ANAEMIA [None]
  - BIOPSY BONE MARROW [None]
  - BLOOD CHLORIDE INCREASED [None]
  - BLOOD CREATININE INCREASED [None]
  - BLOOD LACTATE DEHYDROGENASE INCREASED [None]
  - BLOOD URIC ACID INCREASED [None]
  - BONE MARROW FAILURE [None]
  - CERVICAL SPINAL STENOSIS [None]
  - CLOSTRIDIUM DIFFICILE COLITIS [None]
  - HAEMOGLOBIN DECREASED [None]
  - HEADACHE [None]
  - HYPOKALAEMIA [None]
  - NAUSEA [None]
  - NEUTROPENIA [None]
  - PAIN [None]
  - PARAESTHESIA [None]
  - SERUM FERRITIN INCREASED [None]
  - VOMITING [None]
  - WHITE BLOOD CELL COUNT DECREASED [None]
